FAERS Safety Report 11809071 (Version 1)
Quarter: 2015Q4

REPORT INFORMATION
  Report Type: Spontaneous
  Country: CA (occurrence: CA)
  Receive Date: 20151207
  Receipt Date: 20151207
  Transmission Date: 20160305
  Serious: Yes (Death, Congenital Anomaly, Other)
  Sender: FDA-Public Use
  Company Number: PHHY2015CA158387

PATIENT
  Sex: Female

DRUGS (2)
  1. ZOFRAN [Suspect]
     Active Substance: ONDANSETRON HYDROCHLORIDE
     Indication: FOETAL EXPOSURE DURING PREGNANCY
     Dosage: FOR APPROXIMATELY 4 MONTHS
     Route: 064
  2. ZOFRAN [Suspect]
     Active Substance: ONDANSETRON HYDROCHLORIDE
     Indication: FOETAL EXPOSURE DURING PREGNANCY
     Dosage: FOR APPROXIMATELY 4 MONTHS
     Route: 064

REACTIONS (11)
  - Atrial septal defect [Unknown]
  - Congenital anomaly [Fatal]
  - Pulmonary artery atresia [Unknown]
  - Foetal exposure during pregnancy [Unknown]
  - Fallot^s tetralogy [Unknown]
  - Postoperative thrombosis [Unknown]
  - Post procedural complication [Unknown]
  - Ventricular septal defect [Unknown]
  - Multiple cardiac defects [Unknown]
  - Congenital arterial malformation [Unknown]
  - Post procedural infection [Unknown]
